FAERS Safety Report 10883181 (Version 4)
Quarter: 2015Q2

REPORT INFORMATION
  Report Type: Report from Study
  Country: KR (occurrence: KR)
  Receive Date: 20150303
  Receipt Date: 20150428
  Transmission Date: 20150821
  Serious: Yes (Hospitalization)
  Sender: FDA-Public Use
  Company Number: KR-PFIZER INC-2015077395

PATIENT
  Age: 48 Year
  Sex: Male
  Weight: 95 kg

DRUGS (14)
  1. ANYDIPINE [Concomitant]
     Indication: HYPERTENSION
     Dosage: UNK
     Dates: start: 20050511, end: 20150301
  2. ACETAL/ AIRTAL/ CLANZA-S [Concomitant]
     Indication: ARTHRALGIA
     Dosage: 100 MG, 2X/DAY
     Route: 048
     Dates: start: 20141110
  3. STILLEN [Concomitant]
     Indication: ARTHRALGIA
     Dosage: 60 MG, 2X/DAY
     Route: 048
     Dates: start: 20141110, end: 20150227
  4. ASACOL DR [Concomitant]
     Indication: COLITIS ULCERATIVE
     Dosage: UNK
     Dates: start: 20050421, end: 20150227
  5. LIPITOR [Concomitant]
     Active Substance: ATORVASTATIN CALCIUM
     Indication: HYPERCHOLESTEROLAEMIA
     Dosage: UNK
     Dates: start: 20090805, end: 20150227
  6. BEZALIP [Concomitant]
     Active Substance: BEZAFIBRATE
     Indication: HYPERCHOLESTEROLAEMIA
     Dosage: UNK
     Dates: start: 20090805, end: 20150227
  7. DILATREND [Concomitant]
     Active Substance: CARVEDILOL
     Indication: HYPERTENSION
     Dosage: UNK
     Dates: start: 20060521, end: 20150301
  8. ZYLORIC [Concomitant]
     Active Substance: ALLOPURINOL
     Indication: HYPERURICAEMIA
     Dosage: UNK
     Dates: start: 20100623, end: 20150227
  9. ULTRACET [Concomitant]
     Active Substance: ACETAMINOPHEN\TRAMADOL HYDROCHLORIDE
     Indication: ARTHRALGIA
     Dosage: 1 DF(TABLET), 2X/DAY
     Route: 048
     Dates: start: 20141110, end: 20150227
  10. TRITACE PROTECT [Concomitant]
     Indication: HYPERTENSION
     Dosage: UNK
     Dates: start: 20061117, end: 20150301
  11. SEKARON [Concomitant]
     Indication: ARTHRALGIA
     Dosage: 20 MG, 2X/DAY
     Route: 048
     Dates: start: 20141110, end: 20150222
  12. SINGULAIR [Concomitant]
     Active Substance: MONTELUKAST SODIUM
     Indication: ASTHMA
     Dosage: UNK
     Dates: start: 20140214, end: 20150227
  13. TOFACITINIB CITRATE [Suspect]
     Active Substance: TOFACITINIB CITRATE
     Indication: COLITIS ULCERATIVE
     Dosage: 10 MG, 2X/DAY
     Route: 048
     Dates: start: 20130503, end: 20150224
  14. SYMBICORT [Concomitant]
     Active Substance: BUDESONIDE\FORMOTEROL FUMARATE DIHYDRATE
     Indication: ASTHMA
     Dosage: UNK
     Dates: start: 20140214, end: 20150227

REACTIONS (1)
  - Arthritis bacterial [Recovering/Resolving]

NARRATIVE: CASE EVENT DATE: 20150216
